FAERS Safety Report 6861480-5 (Version None)
Quarter: 2010Q3

REPORT INFORMATION
  Report Type: 
  Country: None (occurrence: None)
  Receive Date: 20100715
  Receipt Date: 20100630
  Transmission Date: 20110219
  Serious: Yes (Death)
  Sender: FDA-Public Use
  Company Number: 2010002687

PATIENT
  Age: 73 Year
  Sex: Male

DRUGS (10)
  1. ERLOTINIB HYDROCHLORIDE [Suspect]
     Indication: LUNG SQUAMOUS CELL CARCINOMA STAGE UNSPECIFIED
     Dosage: 150 MG, QD, ORAL
     Route: 048
     Dates: start: 20090715, end: 20100101
  2. WARFARIN POTASSIUM (WARFARIN POTASSIUM) [Suspect]
     Indication: PRODUCT USED FOR UNKNOWN INDICATION
     Dosage: 2 MG, QD, ORAL
     Route: 048
     Dates: end: 20100101
  3. LANIRAPID (METILDIGOXIN) [Concomitant]
  4. ADALAT CC [Concomitant]
  5. MARZULENE (SODIUM GUALENATE) [Concomitant]
  6. SIGMART (NICORANDIL) [Concomitant]
  7. NITRODERM [Concomitant]
  8. NOVOLOG [Concomitant]
  9. HEPARIN SODIUM [Concomitant]
  10. MUCOSOLVAN (AMBROXOL HDROCHLORIDE) [Concomitant]

REACTIONS (9)
  - BLOOD BILIRUBIN INCREASED [None]
  - CONSTIPATION [None]
  - DECREASED APPETITE [None]
  - DIARRHOEA [None]
  - DRY SKIN [None]
  - GINGIVAL BLEEDING [None]
  - MUSCULOSKELETAL PAIN [None]
  - RASH [None]
  - STOMATITIS [None]
